FAERS Safety Report 13936376 (Version 1)
Quarter: 2017Q3

REPORT INFORMATION
  Report Type: Spontaneous
  Country: HN (occurrence: HN)
  Receive Date: 20170831
  Receipt Date: 20170831
  Transmission Date: 20171127
  Serious: Yes (Life-Threatening, Hospitalization, Disabling, Other)
  Sender: FDA-Public Use
  Company Number: None

PATIENT
  Age: 32 Year
  Sex: Male

DRUGS (1)
  1. GEODON [Suspect]
     Active Substance: ZIPRASIDONE HYDROCHLORIDE\ZIPRASIDONE MESYLATE
     Indication: DEPRESSION
     Dosage: ?          QUANTITY:1 CAPSULE(S);?
     Route: 048
     Dates: start: 20040305, end: 20041218

REACTIONS (10)
  - Pain [None]
  - Fatigue [None]
  - Photosensitivity reaction [None]
  - Dry skin [None]
  - Musculoskeletal stiffness [None]
  - Somnolence [None]
  - Seizure [None]
  - Allergy to metals [None]
  - Feeling hot [None]
  - Dust allergy [None]

NARRATIVE: CASE EVENT DATE: 20041218
